FAERS Safety Report 4434412-7 (Version None)
Quarter: 2004Q3

REPORT INFORMATION
  Report Type: 
  Country: None (occurrence: None)
  Receive Date: 20040825
  Receipt Date: 20040812
  Transmission Date: 20050211
  Serious: Yes (Hospitalization, Other)
  Sender: FDA-Public Use
  Company Number: 2004040193

PATIENT
  Age: 72 Year
  Sex: Male

DRUGS (10)
  1. DILANTIN KAPSEAL [Suspect]
     Indication: CONVULSION
     Dosage: 400 MG (200 MG, 2 IN 1 D), ORAL
     Route: 048
     Dates: start: 19890101
  2. CYANOCOBALAMIN [Concomitant]
  3. PREDNISONE [Concomitant]
  4. MIGLITOL [Concomitant]
  5. TOPIRMATE [Concomitant]
  6. RANITIDINE HYDROCHLORIDE [Concomitant]
  7. IRON [Concomitant]
  8. MULTIVITAMINS (ASCORBIC ACID, ERGOCALCIFEROL, FOLIC ACID, NICOTINAMIDE [Concomitant]
  9. TRIAMCINOLONE ACETONIDE [Concomitant]
  10. ALBUTEROL SULFATE [Concomitant]

REACTIONS (2)
  - ANTICONVULSANT DRUG LEVEL DECREASED [None]
  - CONVULSION [None]
